FAERS Safety Report 6413191-8 (Version None)
Quarter: 2009Q4

REPORT INFORMATION
  Report Type: 
  Country: None (occurrence: None)
  Receive Date: 20091026
  Receipt Date: 20091013
  Transmission Date: 20100525
  Serious: Yes (Other)
  Sender: FDA-Public Use
  Company Number: PHEH2009US14095

PATIENT
  Sex: Male

DRUGS (6)
  1. EXJADE [Suspect]
     Indication: APLASTIC ANAEMIA
     Dosage: 1000 MG, DAILY
     Route: 048
     Dates: start: 20090909, end: 20091013
  2. DOXAZOSIN MESYLATE [Concomitant]
  3. TYLENOL [Concomitant]
  4. CENTRUM SILVER [Concomitant]
  5. CYCLOSPORINE [Concomitant]
  6. COLACE [Concomitant]

REACTIONS (6)
  - BLOOD PRESSURE INCREASED [None]
  - DYSPNOEA [None]
  - FATIGUE [None]
  - FULL BLOOD COUNT DECREASED [None]
  - HEADACHE [None]
  - PYREXIA [None]
